FAERS Safety Report 6139028-2 (Version None)
Quarter: 2009Q1

REPORT INFORMATION
  Report Type: 
  Country: None (occurrence: None)
  Receive Date: 20090324
  Receipt Date: 20090317
  Transmission Date: 20090719
  Serious: Yes (Hospitalization, Other)
  Sender: FDA-Public Use
  Company Number: 236071J08USA

PATIENT
  Age: 63 Year
  Sex: Male

DRUGS (2)
  1. REBIF [Suspect]
     Indication: MULTIPLE SCLEROSIS
     Dosage: 44 MCG, 3 IN 1 WEEKS, SUBCUTANEOUS
     Route: 058
     Dates: start: 20080320
  2. LOVASTATIN [Concomitant]

REACTIONS (6)
  - HAEMORRHAGE [None]
  - INFECTION [None]
  - INTESTINAL HAEMORRHAGE [None]
  - SCAR [None]
  - SMALL INTESTINAL OBSTRUCTION [None]
  - VOLVULUS [None]
